FAERS Safety Report 16424662 (Version 1)
Quarter: 2019Q2

REPORT INFORMATION
  Report Type: Spontaneous
  Country: NO (occurrence: NO)
  Receive Date: 20190613
  Receipt Date: 20190613
  Transmission Date: 20190711
  Serious: Yes (Death, Other)
  Sender: FDA-Public Use
  Company Number: PHHY2019NO136383

PATIENT
  Age: 48 Year
  Sex: Male

DRUGS (1)
  1. VOLTAREN [Suspect]
     Active Substance: DICLOFENAC SODIUM
     Indication: ABDOMINAL PAIN UPPER
     Dosage: REPORTING PHYSICIAN DOES NOT HAVE INFORMATION ON STRENGTH OR DOSAGE.
     Route: 048
     Dates: start: 20190224, end: 201902

REACTIONS (3)
  - Cardiac arrest [Fatal]
  - Hypovolaemic shock [Fatal]
  - Duodenal ulcer haemorrhage [Fatal]

NARRATIVE: CASE EVENT DATE: 20190302
